FAERS Safety Report 7585556-2 (Version None)
Quarter: 2011Q2

REPORT INFORMATION
  Report Type: 
  Country: None (occurrence: None)
  Receive Date: 20110624
  Receipt Date: 20110609
  Transmission Date: 20111010
  Serious: Yes (Hospitalization)
  Sender: FDA-Public Use
  Company Number: IDR-00488

PATIENT
  Age: 76 Year
  Sex: Male

DRUGS (1)
  1. INDERAL [Suspect]
     Indication: VARICES OESOPHAGEAL
     Dosage: 80 MG HS / 5 MG TID
     Route: 048
     Dates: end: 20110301

REACTIONS (3)
  - FALL [None]
  - LOWER LIMB FRACTURE [None]
  - BRADYCARDIA [None]
